FAERS Safety Report 11260503 (Version 1)
Quarter: 2015Q3

REPORT INFORMATION
  Report Type: Spontaneous
  Country: CA (occurrence: CA)
  Receive Date: 20150710
  Receipt Date: 20150710
  Transmission Date: 20151125
  Serious: Yes (Other)
  Sender: FDA-Public Use
  Company Number: CA-HOSPIRA-2730909

PATIENT
  Age: 26 Year
  Sex: Male
  Weight: 97 kg

DRUGS (5)
  1. CISPLATIN. [Suspect]
     Active Substance: CISPLATIN
     Indication: SMALL INTESTINE ADENOCARCINOMA
     Dosage: NOT REPORTED
     Route: 065
  2. OLMESARTAN MEDOXOMIL. [Concomitant]
     Active Substance: OLMESARTAN MEDOXOMIL
     Indication: PRODUCT USED FOR UNKNOWN INDICATION
     Dosage: NOT REPORTED
  3. EPIRUBICIN HYDROCHLORIDE. [Suspect]
     Active Substance: EPIRUBICIN HYDROCHLORIDE
     Indication: SMALL INTESTINE ADENOCARCINOMA
     Dosage: NOT REPORTED
     Route: 065
  4. XELODA [Suspect]
     Active Substance: CAPECITABINE
     Indication: SMALL INTESTINE ADENOCARCINOMA
     Dosage: NOT REPORTED
     Route: 065
  5. XELODA [Suspect]
     Active Substance: CAPECITABINE
     Indication: SMALL INTESTINE ADENOCARCINOMA
     Dosage: NOT REPORTED
     Route: 065

REACTIONS (4)
  - Back pain [Recovered/Resolved]
  - Pain in extremity [Recovered/Resolved]
  - Drug ineffective [Recovered/Resolved]
  - Thrombosis [Recovered/Resolved]
